FAERS Safety Report 8127038-5 (Version None)
Quarter: 2012Q1

REPORT INFORMATION
  Report Type: 
  Country: None (occurrence: None)
  Receive Date: 20120210
  Receipt Date: 20120201
  Transmission Date: 20120608
  Serious: Yes (Hospitalization)
  Sender: FDA-Public Use
  Company Number: US-SANOFI-AVENTIS-2012SA006802

PATIENT
  Sex: Female

DRUGS (2)
  1. LANTUS [Suspect]
     Dosage: NIGHTLY DOSE:26 UNIT(S)
     Route: 058
  2. SOLOSTAR [Suspect]

REACTIONS (1)
  - DEHYDRATION [None]
